FAERS Safety Report 8830108 (Version 1)
Quarter: 2012Q4

REPORT INFORMATION
  Report Type: Spontaneous
  Country: US (occurrence: None)
  Receive Date: 20121005
  Receipt Date: 20121005
  Transmission Date: 20130627
  Serious: No
  Sender: FDA-Public Use
  Company Number: None

PATIENT
  Age: 49 Year
  Sex: Male
  Weight: 102.06 kg

DRUGS (1)
  1. LIPITOR [Suspect]
     Indication: HYPERLIPIDEMIA
     Dosage: 10 mg / daily
     Dates: start: 20120803

REACTIONS (2)
  - Pain in extremity [None]
  - Myalgia [None]
